FAERS Safety Report 7488889-3 (Version None)
Quarter: 2011Q2

REPORT INFORMATION
  Report Type: 
  Country: None (occurrence: None)
  Receive Date: 20110518
  Receipt Date: 20110509
  Transmission Date: 20111010
  Serious: Yes (Hospitalization)
  Sender: FDA-Public Use
  Company Number: PHHY2011US39069

PATIENT
  Age: 57 Year
  Sex: Female

DRUGS (1)
  1. CLARITHROMYCIN [Suspect]
     Indication: ACUTE SINUSITIS
     Dosage: 500 MG, BID

REACTIONS (9)
  - SERUM SICKNESS-LIKE REACTION [None]
  - MYALGIA [None]
  - RED BLOOD CELL SEDIMENTATION RATE DECREASED [None]
  - COMPLEMENT FACTOR DECREASED [None]
  - ARTHRALGIA [None]
  - ASTHENIA [None]
  - RASH MORBILLIFORM [None]
  - RASH GENERALISED [None]
  - DYSPNOEA [None]
